FAERS Safety Report 9344137 (Version 1)
Quarter: 2013Q2

REPORT INFORMATION
  Report Type: Spontaneous
  Country: GR (occurrence: GR)
  Receive Date: 20130612
  Receipt Date: 20130612
  Transmission Date: 20140414
  Serious: Yes (Hospitalization)
  Sender: FDA-Public Use
  Company Number: GR-UCBSA-087746

PATIENT
  Age: 73 Year
  Sex: Male

DRUGS (2)
  1. NEUPRO [Suspect]
     Indication: PARKINSON^S DISEASE
     Route: 062
     Dates: end: 201305
  2. L-DOPA [Concomitant]
     Indication: PARKINSON^S DISEASE
     Dosage: UNKNOWN DOSE
     Route: 048

REACTIONS (1)
  - Fall [Recovered/Resolved]
